FAERS Safety Report 5082355-0 (Version None)
Quarter: 2006Q3

REPORT INFORMATION
  Report Type: 
  Country: None (occurrence: None)
  Receive Date: 20060814
  Receipt Date: 20060807
  Transmission Date: 20061208
  Serious: Yes (Other)
  Sender: FDA-Public Use
  Company Number: 228439

PATIENT
  Age: 53 Year
  Sex: Female

DRUGS (1)
  1. XOLAIR [Suspect]
     Indication: ASTHMA
     Dates: start: 20030101, end: 20040101

REACTIONS (5)
  - ANAPHYLACTIC REACTION [None]
  - ORAL MUCOSAL BLISTERING [None]
  - PYREXIA [None]
  - SELF-MEDICATION [None]
  - TONGUE BLISTERING [None]
